FAERS Safety Report 24704462 (Version 1)
Quarter: 2024Q4

REPORT INFORMATION
  Report Type: Spontaneous
  Country: DE (occurrence: DE)
  Receive Date: 20241206
  Receipt Date: 20241206
  Transmission Date: 20250115
  Serious: Yes (Other)
  Sender: BAXTER
  Company Number: DE-DCGMA-24204262

PATIENT
  Age: 4 Day
  Sex: Female
  Weight: 1.15 kg

DRUGS (1)
  1. AMINO ACIDS\DEXTROSE\ELECTROLYTES NOS\SOYBEAN OIL [Suspect]
     Active Substance: AMINO ACIDS\DEXTROSE\ELECTROLYTES NOS\SOYBEAN OIL
     Indication: Parenteral nutrition
     Dosage: 4.3-5.2 ML/H (DURATION: 3 DAYS)
     Route: 065
     Dates: start: 20241103, end: 20241106

REACTIONS (6)
  - Metabolic acidosis [Unknown]
  - Intra-abdominal fluid collection [Unknown]
  - Vessel perforation [Unknown]
  - Product administered at inappropriate site [Unknown]
  - Dysuria [Unknown]
  - Hyponatraemia [Unknown]

NARRATIVE: CASE EVENT DATE: 20241106
